FAERS Safety Report 5901811-3 (Version None)
Quarter: 2008Q3

REPORT INFORMATION
  Report Type: 
  Country: None (occurrence: None)
  Receive Date: 20080929
  Receipt Date: 20080925
  Transmission Date: 20090109
  Serious: Yes (Other)
  Sender: FDA-Public Use
  Company Number: US-ABBOTT-08P-163-0463680-00

PATIENT
  Sex: Female
  Weight: 40.86 kg

DRUGS (2)
  1. HUMIRA [Suspect]
     Indication: CROHN'S DISEASE
     Route: 050
     Dates: start: 20070301, end: 20070701
  2. HUMIRA [Suspect]
     Route: 050
     Dates: start: 20080501

REACTIONS (6)
  - ACCIDENTAL EXPOSURE [None]
  - INCISIONAL HERNIA [None]
  - INJECTION SITE HAEMATOMA [None]
  - INJECTION SITE HAEMORRHAGE [None]
  - INJECTION SITE SWELLING [None]
  - INTESTINAL RESECTION [None]
